FAERS Safety Report 23899537 (Version 1)
Quarter: 2024Q2

REPORT INFORMATION
  Report Type: Spontaneous
  Country: US (occurrence: None)
  Receive Date: 20240526
  Receipt Date: 20240526
  Transmission Date: 20240716
  Serious: No
  Sender: FDA-Public Use
  Company Number: US-ROCHE-3541921

PATIENT
  Sex: Male

DRUGS (14)
  1. ACTEMRA [Suspect]
     Active Substance: TOCILIZUMAB
     Indication: Rheumatoid arthritis
     Dosage: STRENGTH 0.9 ML
     Route: 058
     Dates: start: 20240402
  2. ACTEMRA [Suspect]
     Active Substance: TOCILIZUMAB
  3. ALBUTEROL SULFATE [Concomitant]
     Active Substance: ALBUTEROL SULFATE
  4. CELEBREX [Concomitant]
     Active Substance: CELECOXIB
  5. COZAAR [Concomitant]
     Active Substance: LOSARTAN POTASSIUM
  6. CRESTOR [Concomitant]
     Active Substance: ROSUVASTATIN CALCIUM
  7. FUROSEMIDE [Concomitant]
     Active Substance: FUROSEMIDE
  8. JARDIANCE [Concomitant]
     Active Substance: EMPAGLIFLOZIN
  9. PRILOSEC [Concomitant]
     Active Substance: OMEPRAZOLE MAGNESIUM
  10. REXULTI [Concomitant]
     Active Substance: BREXPIPRAZOLE
  11. RYBELSUS [Concomitant]
     Active Substance: SEMAGLUTIDE
  12. VIIBRYD [Concomitant]
     Active Substance: VILAZODONE HYDROCHLORIDE
  13. SPIRIVA [Concomitant]
     Active Substance: TIOTROPIUM BROMIDE MONOHYDRATE
     Dosage: 18 MCG
  14. TAMSULOSIN HYDROCHLORIDE [Concomitant]
     Active Substance: TAMSULOSIN HYDROCHLORIDE

REACTIONS (1)
  - Pain [Not Recovered/Not Resolved]
